FAERS Safety Report 5586355-3 (Version None)
Quarter: 2008Q1

REPORT INFORMATION
  Report Type: 
  Country: None (occurrence: None)
  Receive Date: 20080107
  Receipt Date: 20080107
  Transmission Date: 20080703
  Serious: No
  Sender: FDA-Public Use
  Company Number: None

PATIENT
  Sex: Male
  Weight: 62.25 kg

DRUGS (2)
  1. FLUOROURACIL [Suspect]
     Dosage: 3570 MG
  2. LEUCOVORIN CALCIUM [Suspect]
     Dosage: 170 MG

REACTIONS (3)
  - NEUTROPENIA [None]
  - PYREXIA [None]
  - WHITE BLOOD CELL COUNT DECREASED [None]
